FAERS Safety Report 8851885 (Version 1)
Quarter: 2012Q4

REPORT INFORMATION
  Report Type: 
  Country: FR (occurrence: FR)
  Receive Date: 20121022
  Receipt Date: 20121022
  Transmission Date: 20130627
  Serious: Yes (Hospitalization)
  Sender: FDA-Public Use
  Company Number: FR-UCBSA-069095

PATIENT
  Age: 22 Year
  Sex: Male

DRUGS (2)
  1. VIMPAT [Suspect]
     Indication: EPILEPSY
     Dosage: DAILY DOSE: 100 MG+150 MG
     Dates: start: 2011
  2. KEPPRA [Suspect]
     Indication: EPILEPSY
     Route: 048
     Dates: start: 2007

REACTIONS (3)
  - Thrombocytopenia [Unknown]
  - Renal failure acute [Unknown]
  - Convulsion [Unknown]
